FAERS Safety Report 9417206 (Version 1)
Quarter: 2013Q3

REPORT INFORMATION
  Report Type: Spontaneous
  Country: EG (occurrence: None)
  Receive Date: 20130722
  Receipt Date: 20130722
  Transmission Date: 20140515
  Serious: Yes (Other)
  Sender: FDA-Public Use
  Company Number: SYM-2013-06965

PATIENT
  Sex: 0

DRUGS (8)
  1. FLUOROURACIL [Suspect]
     Indication: COLORECTAL CANCER
  2. OXALIPLATIN [Suspect]
  3. CALCIUM FOLINATE [Suspect]
  4. IV SOLUTIONS (IV SOLUTIONS [Concomitant]
  5. RANITIDINE (RANITIDINE) (RANITIDINE) [Concomitant]
  6. DEXAMETHASONE (DEXAMETHASONE) [Concomitant]
  7. SEROTONIN ANATAGONIST (SEROTONIN ANTAGONIST) [Concomitant]
  8. ANTIHISTAMINES (ANTIHISTAMINES) [Concomitant]

REACTIONS (1)
  - Neurotoxicity [None]
